FAERS Safety Report 8947273 (Version 1)
Quarter: 2012Q4

REPORT INFORMATION
  Report Type: 
  Country: US (occurrence: US)
  Receive Date: 20121205
  Receipt Date: 20121205
  Transmission Date: 20130627
  Serious: Yes (Hospitalization)
  Sender: FDA-Public Use
  Company Number: US-GLAXOSMITHKLINE-A1003370A

PATIENT
  Age: 38 Year
  Sex: Male

DRUGS (18)
  1. BENLYSTA [Suspect]
     Indication: SYSTEMIC LUPUS ERYTHEMATOSUS
     Route: 042
     Dates: start: 20121018
  2. PREDNISONE [Concomitant]
  3. NIFEDIPINE [Concomitant]
  4. PLAQUENIL [Concomitant]
  5. CELLCEPT [Concomitant]
  6. CREON [Concomitant]
  7. OMEPRAZOLE [Concomitant]
  8. URSODIOL [Concomitant]
  9. ZOLOFT [Concomitant]
  10. TRICOR [Concomitant]
  11. OXYCONTIN [Concomitant]
  12. OXYCODONE [Concomitant]
  13. OLIVE LEAF [Concomitant]
  14. ACIDOPHILUS [Concomitant]
  15. VITAMIN D [Concomitant]
  16. MULTIVITAMINS [Concomitant]
  17. FISH OIL [Concomitant]
  18. SALINE [Concomitant]

REACTIONS (10)
  - Pancreatitis [Recovering/Resolving]
  - Erythema [Recovering/Resolving]
  - Swelling [Recovering/Resolving]
  - Pruritus [Recovering/Resolving]
  - Cough [Recovering/Resolving]
  - Dyspnoea [Recovering/Resolving]
  - Pharyngeal oedema [Recovering/Resolving]
  - Pharyngeal erythema [Recovering/Resolving]
  - Throat irritation [Recovering/Resolving]
  - Pancreatic enzymes increased [Recovering/Resolving]
